FAERS Safety Report 10216076 (Version 1)
Quarter: 2014Q2

REPORT INFORMATION
  Report Type: Report from Study
  Country: TN (occurrence: TN)
  Receive Date: 20140604
  Receipt Date: 20140604
  Transmission Date: 20141212
  Serious: Yes (Death, Other)
  Sender: FDA-Public Use
  Company Number: TN-SA-2014SA070893

PATIENT
  Age: 62 Year
  Sex: Male

DRUGS (6)
  1. PLAVIX [Suspect]
     Indication: ACUTE CORONARY SYNDROME
     Dosage: DOSE: 75/DAY
     Route: 048
     Dates: start: 20101201, end: 20131224
  2. ASPIRIN [Concomitant]
     Route: 048
  3. LASILIX [Concomitant]
     Route: 048
  4. MONO-TILDIEM [Concomitant]
     Route: 048
  5. CRESTOR [Concomitant]
     Route: 048
  6. INSULIN [Concomitant]
     Route: 058

REACTIONS (2)
  - Cerebrovascular accident [Fatal]
  - Coma [Unknown]
